FAERS Safety Report 24964170 (Version 1)
Quarter: 2025Q1

REPORT INFORMATION
  Report Type: Spontaneous
  Country: FR (occurrence: FR)
  Receive Date: 20250213
  Receipt Date: 20250213
  Transmission Date: 20250409
  Serious: Yes (Hospitalization)
  Sender: ROCHE
  Company Number: FR-ROCHE-10000206890

PATIENT
  Age: 29 Year

DRUGS (3)
  1. OCRELIZUMAB [Suspect]
     Active Substance: OCRELIZUMAB
     Indication: Relapsing-remitting multiple sclerosis
     Route: 042
     Dates: start: 202306
  2. FINGOLIMOD [Concomitant]
     Active Substance: FINGOLIMOD
  3. NATALIZUMAB [Concomitant]
     Active Substance: NATALIZUMAB

REACTIONS (2)
  - Arthritis bacterial [Unknown]
  - Hypogammaglobulinaemia [Unknown]
